FAERS Safety Report 21510841 (Version 2)
Quarter: 2023Q1

REPORT INFORMATION
  Report Type: Spontaneous
  Country: US (occurrence: US)
  Receive Date: 20221026
  Receipt Date: 20230124
  Transmission Date: 20230417
  Serious: Yes (Hospitalization)
  Sender: FDA-Public Use
  Company Number: US-JNJFOC-20221026327

PATIENT
  Age: 46 Year
  Sex: Male

DRUGS (2)
  1. INVEGA HAFYERA [Suspect]
     Active Substance: PALIPERIDONE PALMITATE
     Indication: Schizophrenia
     Dosage: HIS NEXT INJECTION IS DUE 17/NOV/2022
     Route: 030
     Dates: start: 20220506
  2. INVEGA HAFYERA [Suspect]
     Active Substance: PALIPERIDONE PALMITATE
     Indication: Bipolar disorder

REACTIONS (2)
  - Dialysis [Recovered/Resolved with Sequelae]
  - Aggression [Unknown]

NARRATIVE: CASE EVENT DATE: 20220101
